FAERS Safety Report 17688123 (Version 2)
Quarter: 2020Q2

REPORT INFORMATION
  Report Type: Other
  Country: IT (occurrence: IT)
  Receive Date: 20200421
  Receipt Date: 20200530
  Transmission Date: 20200714
  Serious: Yes (Hospitalization, Other)
  Sender: FDA-Public Use
  Company Number: IT-MACLEODS PHARMACEUTICALS US LTD-MAC2020026174

PATIENT

DRUGS (8)
  1. SIRDALUD [Suspect]
     Active Substance: TIZANIDINE
     Indication: SUICIDE ATTEMPT
     Dosage: 4 MILLIGRAM, SINGLE, TOTAL
     Route: 048
     Dates: start: 20200207, end: 20200207
  2. XANAX [Suspect]
     Active Substance: ALPRAZOLAM
     Indication: SUICIDE ATTEMPT
     Dosage: 0.5 MILLIGRAM, SINGLE, TOTAL
     Route: 048
     Dates: start: 20200207, end: 20200207
  3. PREDNISONE. [Suspect]
     Active Substance: PREDNISONE
     Indication: SUICIDE ATTEMPT
     Dosage: 30 MILLIGRAM, SINGLE, TOTAL
     Route: 048
     Dates: start: 20200207, end: 20200207
  4. LEVOTHYROXINE SODIUM. [Concomitant]
     Active Substance: LEVOTHYROXINE SODIUM
     Indication: HYPOTHYROIDISM
     Dosage: UNK
     Route: 065
  5. CLOPIDOGREL [Suspect]
     Active Substance: CLOPIDOGREL BISULFATE
     Indication: SUICIDE ATTEMPT
     Dosage: 1 DOSAGE FORM, SINGLE, TOTAL
     Route: 048
     Dates: start: 20200207, end: 20200207
  6. XANAX [Suspect]
     Active Substance: ALPRAZOLAM
     Dosage: 3.5 MILLIGRAM, SINGLE, TOTAL
     Route: 048
     Dates: start: 20200207, end: 20200207
  7. DENIBAN [Suspect]
     Active Substance: AMISULPRIDE
     Indication: SUICIDE ATTEMPT
     Dosage: 1 DOSAGE FORM, SINGLE, TOTAL
     Route: 048
     Dates: start: 20200207, end: 20200207
  8. ENALAPRIL [Suspect]
     Active Substance: ENALAPRIL
     Dosage: 1 DOSAGE FORM, SINGLE, TOTAL
     Route: 048
     Dates: start: 20200207, end: 20200207

REACTIONS (6)
  - Hypoventilation [Recovering/Resolving]
  - Confusional state [Recovering/Resolving]
  - Malaise [Recovering/Resolving]
  - Drug abuse [Recovering/Resolving]
  - Hypotension [Recovering/Resolving]
  - Somnolence [Recovering/Resolving]

NARRATIVE: CASE EVENT DATE: 20200207
